FAERS Safety Report 8978000 (Version 1)
Quarter: 2012Q4

REPORT INFORMATION
  Report Type: 
  Country: US (occurrence: US)
  Receive Date: 20121219
  Receipt Date: 20121219
  Transmission Date: 20130627
  Serious: No
  Sender: FDA-Public Use
  Company Number: US-009507513-1212USA005939

PATIENT
  Age: 31 Year
  Sex: Female

DRUGS (2)
  1. DULERA [Suspect]
     Indication: ASTHMA
     Dosage: 100/5 microgram, UNK
     Route: 055
  2. BYSTOLIC [Concomitant]

REACTIONS (2)
  - Nervousness [Recovered/Resolved]
  - Heart rate increased [Recovered/Resolved]
